FAERS Safety Report 12252634 (Version 1)
Quarter: 2016Q2

REPORT INFORMATION
  Report Type: Spontaneous
  Country: US (occurrence: US)
  Receive Date: 20160411
  Receipt Date: 20160411
  Transmission Date: 20160815
  Serious: No
  Sender: FDA-Public Use
  Company Number: US-PFIZER INC-2016186975

PATIENT
  Age: 58 Year
  Sex: Female

DRUGS (1)
  1. IBRANCE [Suspect]
     Active Substance: PALBOCICLIB
     Indication: NEOPLASM MALIGNANT
     Dosage: UNK, UNK (STRENGTH: 125)

REACTIONS (4)
  - Metastatic neoplasm [Unknown]
  - Onychoclasis [Unknown]
  - Paraesthesia [Unknown]
  - Disease progression [Unknown]

NARRATIVE: CASE EVENT DATE: 20160330
